FAERS Safety Report 5218566-0 (Version None)
Quarter: 2007Q1

REPORT INFORMATION
  Report Type: 
  Country: None (occurrence: None)
  Receive Date: 20061130
  Receipt Date: 20060814
  Transmission Date: 20070707
  Serious: Yes (Other)
  Sender: FDA-Public Use
  Company Number: US200606000799

PATIENT
  Sex: Female
  Weight: 86.2 kg

DRUGS (2)
  1. ZYPREXA [Suspect]
  2. SEROQUEL [Concomitant]

REACTIONS (1)
  - DIABETES MELLITUS [None]
